FAERS Safety Report 10696953 (Version 1)
Quarter: 2015Q1

REPORT INFORMATION
  Report Type: Spontaneous
  Country: US (occurrence: None)
  Receive Date: 20150107
  Receipt Date: 20150107
  Transmission Date: 20150721
  Serious: Yes (Death, Hospitalization)
  Sender: FDA-Public Use
  Company Number: None

PATIENT
  Age: 70 Year
  Sex: Male
  Weight: 93.44 kg

DRUGS (5)
  1. OXYMETAZOLINE HCL [Suspect]
     Active Substance: OXYMETAZOLINE HYDROCHLORIDE
     Indication: PULMONARY CONGESTION
     Dosage: 2-3 SPRAYS?EVERY 10-12 HRS.?NASAL SPRAY
     Route: 045
     Dates: start: 20110310, end: 20110314
  2. CARVEDILOL. [Concomitant]
     Active Substance: CARVEDILOL
  3. PRAVASTATIN [Concomitant]
     Active Substance: PRAVASTATIN\PRAVASTATIN SODIUM
  4. OXYMETAZOLINE HCL [Suspect]
     Active Substance: OXYMETAZOLINE HYDROCHLORIDE
     Indication: NASAL CONGESTION
     Dosage: 2-3 SPRAYS?EVERY 10-12 HRS.?NASAL SPRAY
     Route: 045
     Dates: start: 20110310, end: 20110314
  5. VIT. C [Concomitant]

REACTIONS (9)
  - Speech disorder [None]
  - Fall [None]
  - Loss of consciousness [None]
  - Glioblastoma multiforme [None]
  - Activities of daily living impaired [None]
  - Confusional state [None]
  - VIIth nerve paralysis [None]
  - Disorientation [None]
  - Seizure [None]

NARRATIVE: CASE EVENT DATE: 20110314
